FAERS Safety Report 23245757 (Version 1)
Quarter: 2023Q4

REPORT INFORMATION
  Report Type: Spontaneous
  Country: GB (occurrence: GB)
  Receive Date: 20231130
  Receipt Date: 20231130
  Transmission Date: 20240110
  Serious: Yes (Other)
  Sender: FDA-Public Use
  Company Number: None

PATIENT
  Age: 34 Year
  Sex: Female
  Weight: 98 kg

DRUGS (7)
  1. FEXOFENADINE [Suspect]
     Active Substance: FEXOFENADINE HYDROCHLORIDE
     Indication: Ill-defined disorder
     Dates: start: 20231106
  2. ALBUTEROL [Concomitant]
     Active Substance: ALBUTEROL
     Indication: Ill-defined disorder
     Dosage: INHALE 2 DOSES AS NEEDED
     Dates: start: 20231002
  3. ALBUTEROL [Concomitant]
     Active Substance: ALBUTEROL
     Dosage: 1-2 TABLETS AT NIGHT AS REQUIRED
     Dates: start: 20220215
  4. ALBUTEROL [Concomitant]
     Active Substance: ALBUTEROL
     Dosage: TAKE ONE DAILY WHEN REQUIRED OR MAXIMUM OF FOU..
     Dates: start: 20230825
  5. ALBUTEROL [Concomitant]
     Active Substance: ALBUTEROL
     Dosage: TAKE ONE EACH MORNING
     Dates: start: 20230113
  6. ALBUTEROL [Concomitant]
     Active Substance: ALBUTEROL
     Dosage: TAKE ONE OR TWO 3 TIMES/DAY WHEN REQUIRED
     Dates: start: 20210302
  7. ALBUTEROL [Concomitant]
     Active Substance: ALBUTEROL
     Dosage: INHALE 2 DOSES AS NEEDED
     Dates: start: 20220728, end: 20231002

REACTIONS (6)
  - Headache [Recovering/Resolving]
  - Neck pain [Recovering/Resolving]
  - Dizziness [Recovering/Resolving]
  - Deafness [Recovering/Resolving]
  - Vision blurred [Recovering/Resolving]
  - Vomiting [Recovering/Resolving]

NARRATIVE: CASE EVENT DATE: 20231106
